FAERS Safety Report 25416581 (Version 3)
Quarter: 2025Q3

REPORT INFORMATION
  Report Type: Report from Study
  Country: GB (occurrence: GB)
  Receive Date: 20250610
  Receipt Date: 20250730
  Transmission Date: 20251021
  Serious: Yes (Hospitalization, Other)
  Sender: AMGEN
  Company Number: GB-AMGEN-GBRSL2024025871

PATIENT
  Age: 67 Year
  Sex: Female

DRUGS (1)
  1. ADALIMUMAB [Suspect]
     Active Substance: ADALIMUMAB
     Indication: Rheumatoid arthritis
     Dosage: 40 MILLIGRAM, Q2WK
     Route: 065

REACTIONS (5)
  - Pneumonia [Unknown]
  - Lower respiratory tract infection [Unknown]
  - Urinary tract infection [Unknown]
  - Decreased immune responsiveness [Unknown]
  - Malaise [Unknown]
